FAERS Safety Report 10372783 (Version 2)
Quarter: 2014Q3

REPORT INFORMATION
  Report Type: Spontaneous
  Country: US (occurrence: US)
  Receive Date: 20140808
  Receipt Date: 20140808
  Transmission Date: 20150326
  Serious: No
  Sender: FDA-Public Use
  Company Number: US-BRISTOL-MYERS SQUIBB COMPANY-19430263

PATIENT
  Age: 48 Year
  Sex: Female
  Weight: 71.65 kg

DRUGS (3)
  1. PROMETHAZINE [Concomitant]
     Active Substance: PROMETHAZINE\PROMETHAZINE HYDROCHLORIDE
     Indication: NAUSEA
  2. SPRYCEL [Suspect]
     Active Substance: DASATINIB
     Indication: CHRONIC MYELOID LEUKAEMIA
     Route: 048
     Dates: start: 20130322
  3. ATENOLOL. [Concomitant]
     Active Substance: ATENOLOL
     Indication: MIGRAINE

REACTIONS (4)
  - Headache [Unknown]
  - Psychogenic seizure [Unknown]
  - Nausea [Unknown]
  - Stomatitis [Unknown]
